FAERS Safety Report 5527118-4 (Version None)
Quarter: 2007Q4

REPORT INFORMATION
  Report Type: 
  Country: None (occurrence: None)
  Receive Date: 20071127
  Receipt Date: 20071101
  Transmission Date: 20080405
  Serious: No
  Sender: FDA-Public Use
  Company Number: US-BOEHRINGER INGELHEIM PHARMACEUTICALS, INC.-2007-BP-23753BP

PATIENT
  Sex: Female

DRUGS (3)
  1. CATAPRES-TTS-1 [Suspect]
     Indication: HYPERTENSION
     Route: 061
     Dates: start: 20070101, end: 20070101
  2. NORVASC [Suspect]
     Indication: HYPERTENSION
     Route: 048
     Dates: start: 20070101, end: 20070101
  3. ATENOLOL [Suspect]
     Indication: HYPERTENSION
     Route: 048
     Dates: start: 20070101, end: 20070101

REACTIONS (5)
  - APPLICATION SITE EXCORIATION [None]
  - ARTHRALGIA [None]
  - HEART RATE DECREASED [None]
  - HYPERTENSION [None]
  - URTICARIA [None]
